FAERS Safety Report 4689738-9 (Version None)
Quarter: 2005Q2

REPORT INFORMATION
  Report Type: 
  Country: None (occurrence: None)
  Receive Date: 20050608
  Receipt Date: 20050331
  Transmission Date: 20051028
  Serious: No
  Sender: FDA-Public Use
  Company Number: 2005-BP-05300BP

PATIENT
  Age: 83 Year
  Sex: Male

DRUGS (12)
  1. SPIRIVA [Suspect]
     Indication: CHRONIC OBSTRUCTIVE PULMONARY DISEASE
     Dosage: 18 MCG (18 MCG, QD), PO
     Route: 048
     Dates: start: 20050323, end: 20050330
  2. CORTISPORIN EYE OINTMENT(BACISPORIN) [Concomitant]
  3. ZOCOR [Concomitant]
  4. XOPENEX [Concomitant]
  5. SINGULAIR(MONTELUKAST) [Concomitant]
  6. PREVACID [Concomitant]
  7. PLAVIX [Concomitant]
  8. NEPHROVITE(NEPHRO-VITE) [Concomitant]
  9. COREG [Concomitant]
  10. RUXAMETHAZAIR [Concomitant]
  11. LASIX [Concomitant]
  12. LANOXIN [Concomitant]

REACTIONS (1)
  - VISION BLURRED [None]
